FAERS Safety Report 5058476-5 (Version None)
Quarter: 2006Q3

REPORT INFORMATION
  Report Type: 
  Country: None (occurrence: None)
  Receive Date: 20060721
  Receipt Date: 20060717
  Transmission Date: 20061208
  Serious: Yes (Death, Hospitalization, Congenital Anomaly)
  Sender: FDA-Public Use
  Company Number: FR-BOEHRINGER INGELHEIM PHARMACEUTICALS, INC.-2006-FF-00621FF

PATIENT
  Age: 0 Hour
  Sex: Female

DRUGS (6)
  1. CATAPRES [Suspect]
     Indication: ESSENTIAL HYPERTENSION
     Route: 015
     Dates: start: 20030201
  2. ADEPAL [Concomitant]
     Route: 015
     Dates: end: 20030131
  3. LEVOTHYROXINE SODIUM [Concomitant]
     Route: 015
  4. TEMESTA [Concomitant]
     Route: 015
     Dates: start: 20030201
  5. FOSINOPRIL SODIUM AND HYDROCHLOROTHIAZIDE [Concomitant]
     Route: 015
     Dates: end: 20030131
  6. ALPRAZOLAM [Concomitant]
     Route: 015
     Dates: end: 20030131

REACTIONS (3)
  - DRUG EXPOSURE DURING PREGNANCY [None]
  - POTTER'S SYNDROME [None]
  - PULMONARY HYPOPLASIA [None]
